FAERS Safety Report 8583060 (Version 6)
Quarter: 2012Q4

REPORT INFORMATION
  Report Type: 
  Country: US (occurrence: US)
  Receive Date: 20120529
  Receipt Date: 20120913
  Transmission Date: 20130627
  Serious: Yes (Death, Other)
  Sender: FDA-Public Use
  Company Number: US-PFIZER INC-2012124606

PATIENT
  Age: 70 Year
  Sex: Female

DRUGS (5)
  1. LYRICA [Suspect]
     Indication: HERPES ZOSTER
     Dosage: UNK
  2. GABAPENTIN [Suspect]
     Dosage: 600 mg, UNK
  3. IBUPROFEN [Suspect]
     Dosage: 800 mg, UNK
  4. HYDROCODONE [Suspect]
     Dosage: 500 mg, UNK
  5. NORTRIPTYLINE [Suspect]
     Dosage: 25 mg, UNK

REACTIONS (2)
  - Completed suicide [Fatal]
  - Suicidal ideation [Fatal]
